FAERS Safety Report 4442490-4 (Version None)
Quarter: 2004Q3

REPORT INFORMATION
  Report Type: 
  Country: None (occurrence: None)
  Receive Date: 20040903
  Receipt Date: 20040728
  Transmission Date: 20050211
  Serious: Yes (Other)
  Sender: FDA-Public Use
  Company Number: 2004UW16140

PATIENT
  Age: 62 Year
  Sex: Female
  Weight: 73.4827 kg

DRUGS (8)
  1. CRESTOR [Suspect]
     Indication: HYPERCHOLESTEROLAEMIA
     Dosage: 10 MG QD PO
     Route: 048
  2. PREVACID [Concomitant]
  3. ALTACE [Concomitant]
  4. SYNTHROID [Concomitant]
  5. TIZANIDINE HCL [Concomitant]
  6. CARDIZEM [Concomitant]
  7. FLUOXETINE [Concomitant]
  8. COUMADIN [Concomitant]

REACTIONS (1)
  - NOCTURIA [None]
